FAERS Safety Report 16071514 (Version 3)
Quarter: 2019Q2

REPORT INFORMATION
  Report Type: Spontaneous
  Country: US (occurrence: US)
  Receive Date: 20190314
  Receipt Date: 20190411
  Transmission Date: 20190711
  Serious: Yes (Hospitalization)
  Sender: FDA-Public Use
  Company Number: US-JNJFOC-20190212614

PATIENT
  Age: 68 Year
  Sex: Male
  Weight: 129.73 kg

DRUGS (1)
  1. TREMFYA [Suspect]
     Active Substance: GUSELKUMAB
     Indication: PSORIASIS
     Route: 058
     Dates: start: 20181119

REACTIONS (9)
  - Acute kidney injury [Unknown]
  - Pyrexia [Unknown]
  - Hepatocellular carcinoma [Not Recovered/Not Resolved]
  - Blood creatinine increased [Unknown]
  - Weight decreased [Unknown]
  - Anaemia [Unknown]
  - Nausea [Unknown]
  - Vomiting [Unknown]
  - Dyspnoea [Unknown]

NARRATIVE: CASE EVENT DATE: 20190110
